FAERS Safety Report 22299628 (Version 1)
Quarter: 2023Q2

REPORT INFORMATION
  Report Type: Spontaneous
  Country: US (occurrence: None)
  Receive Date: 20230508
  Receipt Date: 20230508
  Transmission Date: 20230721
  Serious: Yes (Disabling, Other)
  Sender: FDA-Public Use
  Company Number: None

PATIENT
  Age: 48 Year
  Sex: Female
  Weight: 91.8 kg

DRUGS (6)
  1. OFLOXACIN OPHTHALMIC [Suspect]
     Active Substance: OFLOXACIN
     Indication: Conjunctivitis
     Dosage: FREQUENCY : 4 TIMES A DAY;?
     Route: 047
     Dates: start: 20230223, end: 20230302
  2. TOPIRAMATE [Concomitant]
     Active Substance: TOPIRAMATE
  3. PHENTERMINE [Concomitant]
     Active Substance: PHENTERMINE
  4. Maxide-Hctz [Concomitant]
  5. WELLBUTRIN XL [Concomitant]
     Active Substance: BUPROPION HYDROCHLORIDE
  6. Alive B vitamins for health supplement [Concomitant]

REACTIONS (4)
  - Vision blurred [None]
  - Recalled product administered [None]
  - Adulterated product [None]
  - Eye discharge [None]

NARRATIVE: CASE EVENT DATE: 20230223
